FAERS Safety Report 18660882 (Version 4)
Quarter: 2022Q3

REPORT INFORMATION
  Report Type: Spontaneous
  Country: US (occurrence: US)
  Receive Date: 20201224
  Receipt Date: 20220921
  Transmission Date: 20221027
  Serious: Yes (Hospitalization, Other)
  Sender: FDA-Public Use
  Company Number: US-VERTEX PHARMACEUTICALS-2020-000684

PATIENT
  Sex: Female
  Weight: 57 kg

DRUGS (8)
  1. TRIKAFTA [Suspect]
     Active Substance: ELEXACAFTOR\IVACAFTOR\TEZACAFTOR
     Indication: Cystic fibrosis
     Dosage: REDUCED DOSE OF 1 PILL
     Route: 048
     Dates: start: 20191128
  2. TRIKAFTA [Suspect]
     Active Substance: ELEXACAFTOR\IVACAFTOR\TEZACAFTOR
     Dosage: REGULAR DOSAGE REGIMEN
     Route: 048
     Dates: end: 2020
  3. TRIKAFTA [Suspect]
     Active Substance: ELEXACAFTOR\IVACAFTOR\TEZACAFTOR
     Dosage: REDUCED DOSE (MORNING TAB)
     Route: 048
     Dates: start: 2020
  4. CELEXA [Concomitant]
     Active Substance: CITALOPRAM HYDROBROMIDE
  5. SODIUM CHLORIDE [Concomitant]
     Active Substance: SODIUM CHLORIDE
     Route: 055
  6. PERFOROMIST [Concomitant]
     Active Substance: FORMOTEROL FUMARATE DIHYDRATE
     Dosage: 20 MCG/2 ML
     Route: 055
  7. SPIRIVA [Concomitant]
     Active Substance: TIOTROPIUM BROMIDE MONOHYDRATE
  8. PULMICORT TURBUHALER [Concomitant]
     Active Substance: BUDESONIDE
     Dosage: 0.25MG/2ML AMPUL
     Route: 055

REACTIONS (22)
  - Headache [Not Recovered/Not Resolved]
  - Infective pulmonary exacerbation of cystic fibrosis [Unknown]
  - Gallbladder disorder [Unknown]
  - Anaemia [Not Recovered/Not Resolved]
  - Pain [Not Recovered/Not Resolved]
  - Chest pain [Not Recovered/Not Resolved]
  - Nausea [Not Recovered/Not Resolved]
  - Fungal infection [Unknown]
  - Weight decreased [Unknown]
  - Feeling abnormal [Unknown]
  - Memory impairment [Not Recovered/Not Resolved]
  - Illness [Not Recovered/Not Resolved]
  - Pneumonia [Unknown]
  - Gastrointestinal disorder [Unknown]
  - Cataract [Unknown]
  - Malnutrition [Not Recovered/Not Resolved]
  - Muscle atrophy [Unknown]
  - Fatigue [Not Recovered/Not Resolved]
  - Asthenia [Not Recovered/Not Resolved]
  - Dyspepsia [Recovering/Resolving]
  - Blood glucose increased [Unknown]
  - Blood glucose decreased [Unknown]

NARRATIVE: CASE EVENT DATE: 20200101
